FAERS Safety Report 10512789 (Version 1)
Quarter: 2014Q4

REPORT INFORMATION
  Report Type: Spontaneous
  Country: US (occurrence: US)
  Receive Date: 20141013
  Receipt Date: 20141013
  Transmission Date: 20150528
  Serious: Yes (Other)
  Sender: FDA-Public Use
  Company Number: US-CIPLA LTD.-2014US01516

PATIENT

DRUGS (4)
  1. TASISULAM [Suspect]
     Active Substance: TASISULAM
     Indication: PANCREATIC CARCINOMA METASTATIC
     Dosage: 4000 H*MICROG/ML, 2 H IV INFUSION
  2. GEMCITABINE [Suspect]
     Active Substance: GEMCITABINE\GEMCITABINE HYDROCHLORIDE
     Indication: PANCREATIC CARCINOMA METASTATIC
     Dosage: 1000 MG/M2, AS 30 MIN IV INFUSION ON DAYS 1 AND 15
  3. GEMCITABINE [Suspect]
     Active Substance: GEMCITABINE\GEMCITABINE HYDROCHLORIDE
     Indication: SARCOMA
  4. TASISULAM [Suspect]
     Active Substance: TASISULAM
     Indication: SARCOMA

REACTIONS (1)
  - Mucosal inflammation [Unknown]
